FAERS Safety Report 7247670-0 (Version None)
Quarter: 2011Q1

REPORT INFORMATION
  Report Type: 
  Country: None (occurrence: None)
  Receive Date: 20110127
  Receipt Date: 20110121
  Transmission Date: 20110831
  Serious: Yes (Other)
  Sender: FDA-Public Use
  Company Number: US-PFIZER INC-2011015728

PATIENT
  Age: 7 Year
  Sex: Female
  Weight: 54.422 kg

DRUGS (1)
  1. ADVIL [Suspect]
     Indication: PYREXIA
     Dosage: UNK
     Route: 048
     Dates: start: 20110121

REACTIONS (3)
  - PYREXIA [None]
  - RASH PAPULAR [None]
  - SKIN DISCOLOURATION [None]
